FAERS Safety Report 6596478-8 (Version None)
Quarter: 2010Q1

REPORT INFORMATION
  Report Type: 
  Country: None (occurrence: None)
  Receive Date: 20100223
  Receipt Date: 20100211
  Transmission Date: 20100710
  Serious: Yes (Hospitalization)
  Sender: FDA-Public Use
  Company Number: GB-AMGEN-US376578

PATIENT
  Sex: Female
  Weight: 97 kg

DRUGS (16)
  1. ENBREL [Suspect]
     Indication: RHEUMATOID ARTHRITIS
     Route: 058
     Dates: start: 20090501, end: 20090809
  2. PREDNISOLONE [Concomitant]
     Dosage: UNKNOWN
  3. BISOPROLOL [Concomitant]
     Dosage: UNKNOWN
  4. DF118 [Concomitant]
     Dosage: UNKNOWN
  5. DIGOXIN [Concomitant]
     Dosage: UNKNOWN
  6. FRUSEMIDE [Concomitant]
     Dosage: UNKNOWN
  7. OMEPRAZOLE [Concomitant]
     Dosage: UNKNOWN
  8. PARACETAMOL [Concomitant]
     Dosage: UNKNOWN
  9. RAMIPRIL [Concomitant]
     Dosage: UNKNOWN
  10. SPIRONOLACTONE [Concomitant]
     Dosage: UNKNOWN
  11. LEVOTHYROXINE SODIUM [Concomitant]
     Dosage: UNKNOWN
  12. TIOTROPIUM BROMIDE [Concomitant]
     Dosage: UNKNOWN
  13. WARFARIN SODIUM [Concomitant]
     Dosage: UNKNOWN
  14. QVAR 40 [Concomitant]
     Dosage: UNKNOWN
  15. SIMVASTATIN [Concomitant]
     Dosage: UNKNOWN
  16. AZATHIOPRINE [Concomitant]
     Dosage: UNKNOWN
     Dates: end: 20090501

REACTIONS (2)
  - CONDITION AGGRAVATED [None]
  - LEFT VENTRICULAR FAILURE [None]
